FAERS Safety Report 9471398 (Version 1)
Quarter: 2013Q3

REPORT INFORMATION
  Report Type: Spontaneous
  Country: GB (occurrence: GB)
  Receive Date: 20130822
  Receipt Date: 20130822
  Transmission Date: 20140515
  Serious: Yes (Death, Other)
  Sender: FDA-Public Use
  Company Number: GB-PFIZER INC-2013239640

PATIENT
  Age: 14 Year
  Sex: Female

DRUGS (3)
  1. VFEND [Suspect]
     Indication: INFECTION
     Dosage: UNK
     Dates: start: 20130804
  2. ZYVOX [Suspect]
     Indication: INFECTION
  3. CASPOFUNGIN [Concomitant]

REACTIONS (2)
  - Death [Fatal]
  - Hepatic failure [Unknown]
